FAERS Safety Report 6896759-4 (Version None)
Quarter: 2010Q3

REPORT INFORMATION
  Report Type: 
  Country: None (occurrence: None)
  Receive Date: 20100802
  Receipt Date: 20070131
  Transmission Date: 20110219
  Serious: Yes (Hospitalization)
  Sender: FDA-Public Use
  Company Number: US-PFIZER INC-2007008505

PATIENT
  Age: 47 Year
  Sex: Male

DRUGS (4)
  1. LYRICA [Suspect]
  2. NEURONTIN [Suspect]
     Indication: NEURALGIA
  3. NSAID'S [Concomitant]
  4. MARIJUANA [Concomitant]

REACTIONS (1)
  - HEADACHE [None]
